FAERS Safety Report 4409408-1 (Version None)
Quarter: 2004Q3

REPORT INFORMATION
  Report Type: 
  Country: None (occurrence: None)
  Receive Date: 20040723
  Receipt Date: 20040712
  Transmission Date: 20050211
  Serious: No
  Sender: FDA-Public Use
  Company Number: 2004-06-2165

PATIENT
  Age: 88 Year
  Sex: Female
  Weight: 72 kg

DRUGS (10)
  1. AERIUS (DESLORATADINE) TABLETS [Suspect]
     Indication: SENILE PRURITUS
     Dosage: 5 MG QD ORAL
     Route: 048
     Dates: start: 20040615, end: 20040627
  2. RIFAMPICIN OPHTHALMIC SOLUTION [Suspect]
     Dosage: OPHTHALMIC
     Route: 047
     Dates: start: 20040501, end: 20040501
  3. COVERSYL [Concomitant]
  4. FUROSEMIDE [Concomitant]
  5. FELODIPINE [Concomitant]
  6. TARDYFERON [Concomitant]
  7. NITROGLYCERIN [Concomitant]
  8. BECOTIDE [Concomitant]
  9. VENTOLINE INHALATION [Concomitant]
  10. OXYGEN [Concomitant]

REACTIONS (6)
  - ACUTE GENERALISED EXANTHEMATOUS PUSTULOSIS [None]
  - ECZEMA [None]
  - PRURIGO [None]
  - RASH ERYTHEMATOUS [None]
  - SUPERINFECTION [None]
  - TOXIC SKIN ERUPTION [None]
